FAERS Safety Report 6984067-2 (Version None)
Quarter: 2010Q3

REPORT INFORMATION
  Report Type: 
  Country: None (occurrence: None)
  Receive Date: 20100915
  Receipt Date: 20090708
  Transmission Date: 20110219
  Serious: No
  Sender: FDA-Public Use
  Company Number: US-WYE-H10088009

PATIENT
  Age: 63 Year
  Sex: Female

DRUGS (2)
  1. ADVIL LIQUI-GELS [Suspect]
     Indication: HEADACHE
     Dosage: 1-2 CAPSULES AS NEEDED
     Route: 048
     Dates: start: 20090701, end: 20090708
  2. LISINOPRIL [Concomitant]

REACTIONS (2)
  - NERVOUSNESS [None]
  - TREMOR [None]
